FAERS Safety Report 22018397 (Version 3)
Quarter: 2023Q2

REPORT INFORMATION
  Report Type: Spontaneous
  Country: JP (occurrence: JP)
  Receive Date: 20230221
  Receipt Date: 20230512
  Transmission Date: 20230722
  Serious: Yes (Life-Threatening, Other)
  Sender: FDA-Public Use
  Company Number: JP-MALLINCKRODT-T202301286

PATIENT
  Age: 51 Year
  Sex: Female
  Weight: 88 kg

DRUGS (5)
  1. NITRIC OXIDE [Suspect]
     Active Substance: NITRIC OXIDE
     Indication: Pulmonary hypertension
     Dosage: 20 PPM
     Route: 055
     Dates: start: 20221212, end: 2022
  2. NITRIC OXIDE [Suspect]
     Active Substance: NITRIC OXIDE
     Indication: Right ventricular failure
     Dosage: 2.5 PPM (RESPIRATORY)
     Route: 055
     Dates: start: 20221230, end: 20221230
  3. NITRIC OXIDE [Suspect]
     Active Substance: NITRIC OXIDE
     Dosage: 5 PPM (RESPIRATORY)
     Route: 055
     Dates: start: 20221230, end: 20221230
  4. NITRIC OXIDE [Suspect]
     Active Substance: NITRIC OXIDE
     Dosage: 20 PPM (REINTRODUCED)
     Route: 055
  5. NITRIC OXIDE [Suspect]
     Active Substance: NITRIC OXIDE
     Dosage: 20 PPM RESPIRATORY
     Route: 055
     Dates: start: 20221222, end: 2022

REACTIONS (3)
  - Cardio-respiratory arrest [Recovering/Resolving]
  - Blood pressure decreased [Unknown]
  - Pulmonary arterial pressure increased [Unknown]

NARRATIVE: CASE EVENT DATE: 20221230
